FAERS Safety Report 9922740 (Version 2)
Quarter: 2014Q1

REPORT INFORMATION
  Report Type: Spontaneous
  Country: US (occurrence: US)
  Receive Date: 20140225
  Receipt Date: 20140313
  Transmission Date: 20141002
  Serious: Yes (Death)
  Sender: FDA-Public Use
  Company Number: US-ACTELION-A-US2014-95394

PATIENT
  Age: 87 Year
  Sex: Female

DRUGS (3)
  1. VENTAVIS [Suspect]
     Indication: PULMONARY ARTERIAL HYPERTENSION
     Dosage: 5 UNK, 6XDAY
     Route: 055
     Dates: start: 20110318, end: 20140218
  2. SILDENAFIL [Concomitant]
  3. TYVASO [Concomitant]

REACTIONS (2)
  - Myocardial infarction [Fatal]
  - Respiratory arrest [Fatal]
